FAERS Safety Report 13079665 (Version 1)
Quarter: 2017Q1

REPORT INFORMATION
  Report Type: Spontaneous
  Country: CH (occurrence: CH)
  Receive Date: 20170103
  Receipt Date: 20170103
  Transmission Date: 20170428
  Serious: Yes (Other)
  Sender: FDA-Public Use
  Company Number: CH-GLENMARK PHARMACEUTICALS-2016GMK025702

PATIENT
  Age: 72 Year
  Sex: Male

DRUGS (7)
  1. BUPROPION. [Suspect]
     Active Substance: BUPROPION
     Indication: DEPRESSION
     Dosage: 300 MG, UNK
     Route: 065
  2. LITHIUM. [Suspect]
     Active Substance: LITHIUM
     Indication: DEPRESSION
     Dosage: UNK
     Route: 065
  3. TRAZODONE [Suspect]
     Active Substance: TRAZODONE HYDROCHLORIDE
     Indication: DEPRESSION
     Dosage: UNK
     Route: 065
  4. QUETIAPINE. [Suspect]
     Active Substance: QUETIAPINE
     Indication: DEPRESSION
     Dosage: UNK
     Route: 065
  5. LITHIUM. [Suspect]
     Active Substance: LITHIUM
     Dosage: UNK
     Route: 065
  6. BENSERAZIDE [Concomitant]
     Active Substance: BENSERAZIDE
     Indication: TREMOR
     Dosage: UNK
     Route: 065
  7. TRAZODONE [Suspect]
     Active Substance: TRAZODONE HYDROCHLORIDE
     Dosage: 300 MG, UNK
     Route: 065

REACTIONS (6)
  - Neurotoxicity [Unknown]
  - Adverse event [Unknown]
  - Tremor [Unknown]
  - Encephalopathy [Recovered/Resolved]
  - Weight increased [Unknown]
  - Metabolic encephalopathy [Recovered/Resolved]
